FAERS Safety Report 6983415-7 (Version None)
Quarter: 2010Q3

REPORT INFORMATION
  Report Type: 
  Country: None (occurrence: None)
  Receive Date: 20100914
  Receipt Date: 20100914
  Transmission Date: 20110219
  Serious: No
  Sender: FDA-Public Use
  Company Number: None

PATIENT
  Sex: Female
  Weight: 58.3 kg

DRUGS (9)
  1. CARBOPLATIN [Suspect]
     Dosage: 3488 MG
     Dates: end: 20100825
  2. CYCLOPHOSPHAMIDE [Suspect]
     Dosage: 3894 MG
     Dates: end: 20100429
  3. DOXORUBICIN HYDROCHLORIDE [Suspect]
     Dosage: 391 MG
     Dates: end: 20100429
  4. TAXOL [Suspect]
     Dosage: 1539 MG
     Dates: end: 20100311
  5. COMPAZINE [Concomitant]
  6. DECADRON [Concomitant]
  7. EMEND [Concomitant]
  8. MAALOX [Concomitant]
  9. NEULASTA [Concomitant]

REACTIONS (2)
  - LEUKOPENIA [None]
  - WHITE BLOOD CELL COUNT DECREASED [None]
